FAERS Safety Report 4526411-1 (Version None)
Quarter: 2004Q4

REPORT INFORMATION
  Report Type: 
  Country: None (occurrence: None)
  Receive Date: 20041214
  Receipt Date: 20040929
  Transmission Date: 20050328
  Serious: Yes (Hospitalization)
  Sender: FDA-Public Use
  Company Number: GB-ROCHE-381711

PATIENT
  Age: 69 Year
  Sex: Female

DRUGS (10)
  1. IBANDRONIC ACID [Suspect]
     Indication: METASTASES TO BONE
     Dosage: SCHEDULED DOSE OF 50MG DAILY, WAS NOT TAKEN EVERY DAY DURING THIS PERIOD.
     Route: 048
     Dates: start: 20040825, end: 20040906
  2. IBANDRONIC ACID [Suspect]
     Route: 048
     Dates: start: 20040602, end: 20040824
  3. HERCEPTIN [Suspect]
     Indication: DRUG USE FOR UNKNOWN INDICATION
     Route: 065
     Dates: start: 20040913, end: 20040913
  4. IBUPROFEN [Concomitant]
     Dates: start: 20040602
  5. LETROZOLE [Concomitant]
     Dates: start: 20040330, end: 20040906
  6. PROCHLORPERAZINE [Concomitant]
     Dates: start: 20040728
  7. DOMPERIDONE [Concomitant]
     Dates: start: 20040728
  8. METOCLOPRAMIDE [Concomitant]
     Dates: start: 20040906
  9. CO-DANTHRAMER [Concomitant]
     Dates: start: 20040906
  10. NOZINAN [Concomitant]
     Dates: start: 20040915

REACTIONS (6)
  - ACUTE PRERENAL FAILURE [None]
  - DIARRHOEA [None]
  - INFUSION RELATED REACTION [None]
  - NAUSEA [None]
  - TREATMENT NONCOMPLIANCE [None]
  - VOMITING [None]
